FAERS Safety Report 6149953-4 (Version None)
Quarter: 2009Q2

REPORT INFORMATION
  Report Type: 
  Country: None (occurrence: None)
  Receive Date: 20090409
  Receipt Date: 20090402
  Transmission Date: 20091009
  Serious: Yes (Death)
  Sender: FDA-Public Use
  Company Number: A0764890A

PATIENT
  Age: 27 Year
  Sex: Male

DRUGS (11)
  1. ADVAIR HFA [Suspect]
     Indication: DRUG USE FOR UNKNOWN INDICATION
     Dosage: 2PUFF TWICE PER DAY
     Route: 055
  2. SEREVENT [Suspect]
     Indication: DRUG USE FOR UNKNOWN INDICATION
     Route: 055
  3. NORVASC [Concomitant]
  4. ISOSORBIDE [Concomitant]
  5. LIPITOR [Concomitant]
  6. ATACAND [Concomitant]
  7. LASIX [Concomitant]
  8. ALBUTEROL [Concomitant]
  9. BENICAR [Concomitant]
  10. LOTREL [Concomitant]
  11. TOPROL-XL [Concomitant]

REACTIONS (2)
  - ARRHYTHMIA [None]
  - RENAL FAILURE CHRONIC [None]
